FAERS Safety Report 22983951 (Version 2)
Quarter: 2023Q4

REPORT INFORMATION
  Report Type: Spontaneous
  Country: US (occurrence: US)
  Receive Date: 20230926
  Receipt Date: 20231005
  Transmission Date: 20240110
  Serious: No
  Sender: FDA-Public Use
  Company Number: US-JNJFOC-20230933927

PATIENT
  Age: 59 Year
  Sex: Female
  Weight: 83.99 kg

DRUGS (10)
  1. RISPERDAL CONSTA [Suspect]
     Active Substance: RISPERIDONE
     Indication: Product used for unknown indication
     Route: 030
     Dates: start: 20230912
  2. RISPERDAL CONSTA [Suspect]
     Active Substance: RISPERIDONE
  3. RISPERDAL CONSTA [Suspect]
     Active Substance: RISPERIDONE
  4. RISPERDAL CONSTA [Suspect]
     Active Substance: RISPERIDONE
  5. LAMOTRIGINE [Concomitant]
     Active Substance: LAMOTRIGINE
     Route: 048
     Dates: start: 20190508
  6. LAMOTRIGINE [Concomitant]
     Active Substance: LAMOTRIGINE
     Route: 048
     Dates: start: 20190703
  7. RISPERIDONE [Concomitant]
     Active Substance: RISPERIDONE
     Route: 048
     Dates: start: 20200117
  8. BENZTROPINUM [Concomitant]
     Route: 048
     Dates: start: 20201029
  9. CLONAZEPAM [Concomitant]
     Active Substance: CLONAZEPAM
     Route: 048
     Dates: start: 20190807
  10. PROPRANOLOL HYDROCHLORIDE [Concomitant]
     Active Substance: PROPRANOLOL HYDROCHLORIDE
     Route: 048
     Dates: start: 20190807

REACTIONS (2)
  - Product administration error [Unknown]
  - Product dose omission issue [Unknown]

NARRATIVE: CASE EVENT DATE: 20230912
